FAERS Safety Report 9992826 (Version 1)
Quarter: 2014Q1

REPORT INFORMATION
  Report Type: Report from Study
  Country: CA (occurrence: CA)
  Receive Date: 20140310
  Receipt Date: 20140310
  Transmission Date: 20141002
  Serious: Yes (Hospitalization)
  Sender: FDA-Public Use
  Company Number: CA-JNJFOC-20140301539

PATIENT
  Sex: Female
  Weight: 48 kg

DRUGS (1)
  1. REMICADE [Suspect]
     Indication: COLITIS ULCERATIVE
     Route: 042
     Dates: start: 20071120

REACTIONS (6)
  - Metabolic disorder [Recovering/Resolving]
  - Mental disorder [Recovering/Resolving]
  - Back injury [Recovering/Resolving]
  - Weight decreased [Recovering/Resolving]
  - Eating disorder [Recovering/Resolving]
  - Insomnia [Recovering/Resolving]
